FAERS Safety Report 8454059-5 (Version None)
Quarter: 2012Q2

REPORT INFORMATION
  Report Type: 
  Country: None (occurrence: None)
  Receive Date: 20120620
  Receipt Date: 20120614
  Transmission Date: 20120825
  Serious: Yes (Life-Threatening, Hospitalization, Other)
  Sender: FDA-Public Use
  Company Number: FR-PFIZER INC-2012128441

PATIENT
  Age: 76 Year
  Sex: Male
  Weight: 66 kg

DRUGS (1)
  1. LYRICA [Suspect]
     Indication: NEURALGIA
     Dosage: 75 MG, 2X/DAY
     Route: 048
     Dates: start: 20120330, end: 20120502

REACTIONS (5)
  - NEUTROPENIA [None]
  - INFECTION [None]
  - LEUKOPENIA [None]
  - PYREXIA [None]
  - SEPSIS [None]
